FAERS Safety Report 13764707 (Version 3)
Quarter: 2018Q3

REPORT INFORMATION
  Report Type: Spontaneous
  Country: US (occurrence: US)
  Receive Date: 20170718
  Receipt Date: 20180801
  Transmission Date: 20181010
  Serious: Yes (Hospitalization, Other)
  Sender: FDA-Public Use
  Company Number: US-BAUSCH-BL-2017-005106

PATIENT
  Sex: Male
  Weight: 96.25 kg

DRUGS (2)
  1. XIFAXAN [Suspect]
     Active Substance: RIFAXIMIN
     Route: 048
  2. XIFAXAN [Suspect]
     Active Substance: RIFAXIMIN
     Indication: HEPATIC CIRRHOSIS
     Dosage: STARTED ABOUT 5 YEARS AGO
     Route: 048
     Dates: start: 2013, end: 201701

REACTIONS (7)
  - Fluid retention [Unknown]
  - Alpha-1 anti-trypsin deficiency [Unknown]
  - Hepatic cirrhosis [Unknown]
  - Weight increased [Unknown]
  - Chronic obstructive pulmonary disease [Unknown]
  - Treatment noncompliance [Recovered/Resolved]
  - Respiratory distress [Unknown]
